FAERS Safety Report 9176177 (Version 2)
Quarter: 2013Q1

REPORT INFORMATION
  Report Type: Spontaneous
  Country: BR (occurrence: BR)
  Receive Date: 20130321
  Receipt Date: 20130326
  Transmission Date: 20140127
  Serious: Yes (Other)
  Sender: FDA-Public Use
  Company Number: PHHY2013BR026981

PATIENT
  Sex: Male
  Weight: 80 kg

DRUGS (3)
  1. SINVASTACOR [Suspect]
     Indication: BLOOD CHOLESTEROL INCREASED
     Dosage: 20 MG, QD
     Route: 048
     Dates: start: 20130311
  2. GARDENAL//PHENOBARBITAL [Concomitant]
  3. AMITRIL [Concomitant]

REACTIONS (3)
  - Haemoptysis [Recovered/Resolved]
  - Erection increased [Recovered/Resolved]
  - Abdominal pain upper [Recovered/Resolved]
